FAERS Safety Report 16791640 (Version 2)
Quarter: 2019Q4

REPORT INFORMATION
  Report Type: Spontaneous
  Country: US (occurrence: US)
  Receive Date: 20190910
  Receipt Date: 20191028
  Transmission Date: 20200122
  Serious: Yes (Hospitalization, Other)
  Sender: FDA-Public Use
  Company Number: US-ALLERGAN-1936677US

PATIENT
  Sex: Female

DRUGS (1)
  1. RISEDRONATE SODIUM UNK [Suspect]
     Active Substance: RISEDRONATE SODIUM
     Indication: OSTEOPOROSIS
     Dosage: UNK

REACTIONS (10)
  - Erythema [Recovering/Resolving]
  - Eye pain [Recovering/Resolving]
  - Thrombocytosis [Unknown]
  - Leukocytosis [Unknown]
  - Pyrexia [Recovering/Resolving]
  - C-reactive protein increased [Unknown]
  - Periorbital inflammation [Recovering/Resolving]
  - Episcleritis [Recovering/Resolving]
  - Conjunctivitis [Recovering/Resolving]
  - Conjunctival oedema [Recovering/Resolving]
